FAERS Safety Report 8796671 (Version 2)
Quarter: 2013Q3

REPORT INFORMATION
  Report Type: Spontaneous
  Country: US (occurrence: US)
  Receive Date: 20120917
  Receipt Date: 20130912
  Transmission Date: 20140515
  Serious: No
  Sender: FDA-Public Use
  Company Number: US-ABBOTT-12P-163-0930210-00

PATIENT
  Age: 4 Year
  Sex: Female

DRUGS (1)
  1. DEPAKOTE SPRINKLE CAPSULES [Suspect]
     Indication: CONVULSION
     Dates: start: 20111219, end: 20120203

REACTIONS (3)
  - Dermatitis diaper [Recovered/Resolved]
  - Medication residue present [Unknown]
  - Drug ineffective [Unknown]
